FAERS Safety Report 5597799-8 (Version None)
Quarter: 2007Q4

REPORT INFORMATION
  Report Type: 
  Country: None (occurrence: None)
  Receive Date: 20071221
  Receipt Date: 20071019
  Transmission Date: 20080405
  Serious: No
  Sender: FDA-Public Use
  Company Number: SPV1-2007-04643

PATIENT
  Age: 8 Year
  Sex: Male
  Weight: 29.5 kg

DRUGS (1)
  1. VYVANSE [Suspect]
     Indication: ATTENTION DEFICIT/HYPERACTIVITY DISORDER
     Dosage: 30 MG, 1X/DAY:QD, ORAL
     Route: 048
     Dates: start: 20071018

REACTIONS (4)
  - BRUXISM [None]
  - HEART RATE INCREASED [None]
  - HYPERHIDROSIS [None]
  - TRISMUS [None]
